FAERS Safety Report 21928131 (Version 1)
Quarter: 2023Q1

REPORT INFORMATION
  Report Type: Spontaneous
  Country: US (occurrence: None)
  Receive Date: 20230130
  Receipt Date: 20230130
  Transmission Date: 20230418
  Serious: Yes (Other)
  Sender: FDA-Public Use
  Company Number: US-ROCHE-3271244

PATIENT
  Sex: Female
  Weight: 62.198 kg

DRUGS (1)
  1. TECENTRIQ [Suspect]
     Active Substance: ATEZOLIZUMAB
     Indication: Lung carcinoma cell type unspecified stage III
     Dosage: ONCE EVERY 3 WEEKS VIA CHEST PORT ;ONGOING: UNKNOWN
     Route: 065
     Dates: start: 202203

REACTIONS (9)
  - Urinary retention [Not Recovered/Not Resolved]
  - Kidney infection [Unknown]
  - Abdominal pain upper [Unknown]
  - Gait disturbance [Unknown]
  - Swelling [Unknown]
  - Headache [Recovering/Resolving]
  - Cognitive disorder [Not Recovered/Not Resolved]
  - Weight decreased [Unknown]
  - Cystitis [Unknown]

NARRATIVE: CASE EVENT DATE: 20230107
